FAERS Safety Report 25825879 (Version 1)
Quarter: 2025Q3

REPORT INFORMATION
  Report Type: Report from Study
  Country: US (occurrence: US)
  Receive Date: 20250919
  Receipt Date: 20250919
  Transmission Date: 20251021
  Serious: Yes (Other)
  Sender: MALLINCKRODT
  Company Number: US-MALLINCKRODT-MNK202500147

PATIENT
  Sex: Female

DRUGS (3)
  1. CORTICOTROPIN [Suspect]
     Active Substance: CORTICOTROPIN
     Indication: Psoriatic arthropathy
  2. XELJANZ [Concomitant]
     Active Substance: TOFACITINIB CITRATE
  3. COSENTYX [Concomitant]
     Active Substance: SECUKINUMAB

REACTIONS (3)
  - COVID-19 [Not Recovered/Not Resolved]
  - Feeling abnormal [Recovering/Resolving]
  - Memory impairment [Unknown]
